FAERS Safety Report 26054837 (Version 2)
Quarter: 2025Q4

REPORT INFORMATION
  Report Type: Spontaneous
  Country: US (occurrence: US)
  Receive Date: 20251117
  Receipt Date: 20251205
  Transmission Date: 20260118
  Serious: No
  Sender: SANOFI AVENTIS
  Company Number: US-SANOFI-02721344

PATIENT
  Age: 77 Year
  Sex: Female

DRUGS (1)
  1. TOUJEO [Suspect]
     Active Substance: INSULIN GLARGINE
     Indication: Type 2 diabetes mellitus
     Dosage: 28 TO 35 UNITS AND DRUG TREATMENT DURATION:UNKNOWNQD
     Route: 065

REACTIONS (3)
  - Product dispensing issue [Unknown]
  - Product storage error [Unknown]
  - Inappropriate schedule of product administration [Unknown]
